FAERS Safety Report 8060969-3 (Version None)
Quarter: 2012Q1

REPORT INFORMATION
  Report Type: 
  Country: None (occurrence: None)
  Receive Date: 20120120
  Receipt Date: 20120113
  Transmission Date: 20120608
  Serious: Yes (Other)
  Sender: FDA-Public Use
  Company Number: US-ABBOTT-12P-163-0894547-00

PATIENT
  Sex: Female
  Weight: 122.58 kg

DRUGS (6)
  1. HUMIRA [Suspect]
     Indication: CROHN'S DISEASE
     Route: 058
     Dates: start: 20090801, end: 20100901
  2. SYNTHROID [Concomitant]
     Indication: HYPOTHYROIDISM
     Dosage: DAILY DOSE: 100MCG
  3. SARALACTINE [Concomitant]
     Indication: DIURETIC THERAPY
     Dosage: DAILY
  4. GLUTMEZA [Concomitant]
     Indication: DIABETES MELLITUS
     Dosage: DAILY DOSE: 2000MG
  5. IMURAN [Concomitant]
     Indication: PRODUCT USED FOR UNKNOWN INDICATION
     Dosage: DAILY DOSE: 150MG
     Route: 048
     Dates: start: 20080101
  6. HUMIRA [Suspect]
     Route: 058
     Dates: start: 20100901

REACTIONS (6)
  - INJECTION SITE REACTION [None]
  - ABSCESS [None]
  - INJECTION SITE WARMTH [None]
  - INJECTION SITE ERYTHEMA [None]
  - FISTULA [None]
  - INJECTION SITE PAPULE [None]
